FAERS Safety Report 8146042-4 (Version None)
Quarter: 2012Q1

REPORT INFORMATION
  Report Type: 
  Country: None (occurrence: None)
  Receive Date: 20120217
  Receipt Date: 20111031
  Transmission Date: 20120608
  Serious: No
  Sender: FDA-Public Use
  Company Number: US-ABBOTT-11P-163-0869598-00

PATIENT
  Sex: Male
  Weight: 85.806 kg

DRUGS (3)
  1. SIMVASTATIN [Suspect]
     Indication: PRODUCT USED FOR UNKNOWN INDICATION
     Dosage: FOR ABOUT ONE YEAR
  2. SIMCOR [Suspect]
     Indication: PRODUCT USED FOR UNKNOWN INDICATION
  3. UNKNOWN MEDICATIONS [Concomitant]
     Indication: PRODUCT USED FOR UNKNOWN INDICATION

REACTIONS (1)
  - ASTHENIA [None]
